FAERS Safety Report 16392662 (Version 1)
Quarter: 2019Q2

REPORT INFORMATION
  Report Type: Other
  Country: IN (occurrence: IN)
  Receive Date: 20190605
  Receipt Date: 20190605
  Transmission Date: 20190711
  Serious: Yes (Other)
  Sender: FDA-Public Use
  Company Number: IN-VISTAPHARM, INC.-VER201905-000280

PATIENT
  Age: 7 Year
  Sex: Female

DRUGS (1)
  1. PREDNISOLONE. [Suspect]
     Active Substance: PREDNISOLONE
     Indication: PRODUCT USED FOR UNKNOWN INDICATION
     Dosage: 0.5-1 MG/KG (OFF AND ON, SINCE EARLY CHILDHOOD)
     Route: 048

REACTIONS (11)
  - Rickets [Unknown]
  - Myalgia [Unknown]
  - Anaemia [Unknown]
  - Growth retardation [Unknown]
  - Arthralgia [Unknown]
  - Withdrawal syndrome [Unknown]
  - Drug dependence [Unknown]
  - Cataract [Unknown]
  - Epiphyses premature fusion [Unknown]
  - Osteopenia [Unknown]
  - Prescription drug used without a prescription [Unknown]
